FAERS Safety Report 17053768 (Version 4)
Quarter: 2020Q1

REPORT INFORMATION
  Report Type: Spontaneous
  Country: IT (occurrence: IT)
  Receive Date: 20191120
  Receipt Date: 20200203
  Transmission Date: 20200409
  Serious: Yes (Other)
  Sender: FDA-Public Use
  Company Number: IT-SA-2019SA316178

PATIENT
  Age: 50 Year
  Sex: Female

DRUGS (6)
  1. PREDNISONE. [Concomitant]
     Active Substance: PREDNISONE
     Dosage: UNK, QOD ONE FOURTH TABLET OF 25 MG EVERY OTHER DAY
  2. PREDNISONE. [Concomitant]
     Active Substance: PREDNISONE
     Dosage: 7.5 MG, QD
  3. PREDNISONE. [Concomitant]
     Active Substance: PREDNISONE
     Indication: EOSINOPHIL COUNT INCREASED
     Dosage: 25 MG, QD
  4. PREDNISONE. [Concomitant]
     Active Substance: PREDNISONE
     Dosage: HALF TABLET OF 25 MG, QD
  5. PREDNISONE. [Concomitant]
     Active Substance: PREDNISONE
     Dosage: ONE FOURTH TABLET OF 25 MG, QD
  6. DUPIXENT [Suspect]
     Active Substance: DUPILUMAB
     Dosage: UNK
     Dates: start: 20191001, end: 20191224

REACTIONS (2)
  - Eosinophil count increased [Recovering/Resolving]
  - Blood immunoglobulin E increased [Unknown]

NARRATIVE: CASE EVENT DATE: 2019
